FAERS Safety Report 16829651 (Version 5)
Quarter: 2019Q3

REPORT INFORMATION
  Report Type: Spontaneous
  Country: PL (occurrence: PL)
  Receive Date: 20190919
  Receipt Date: 20190927
  Transmission Date: 20191005
  Serious: Yes (Hospitalization, Other)
  Sender: FDA-Public Use
  Company Number: PL-JNJFOC-20190913012

PATIENT
  Age: 52 Year
  Sex: Female

DRUGS (3)
  1. CAELYX [Suspect]
     Active Substance: DOXORUBICIN HYDROCHLORIDE
     Indication: BREAST CANCER
     Dosage: UNK
     Route: 065
     Dates: start: 2013
  2. CYCLOPHOSPHAMIDE. [Suspect]
     Active Substance: CYCLOPHOSPHAMIDE
     Indication: BREAST CANCER
     Route: 065
     Dates: start: 2013
  3. DOCETAXEL. [Suspect]
     Active Substance: DOCETAXEL
     Indication: BREAST CANCER
     Route: 065
     Dates: start: 2013

REACTIONS (8)
  - Granulocytopenia [Unknown]
  - Second primary malignancy [Recovered/Resolved]
  - Myelodysplastic syndrome [Unknown]
  - Graft versus host disease [Unknown]
  - Bronchopulmonary aspergillosis [Unknown]
  - Anaemia [Unknown]
  - Cytomegalovirus infection [Unknown]
  - Thrombocytopenia [Unknown]

NARRATIVE: CASE EVENT DATE: 201409
